FAERS Safety Report 9891485 (Version 5)
Quarter: 2015Q2

REPORT INFORMATION
  Report Type: Spontaneous
  Country: US (occurrence: None)
  Receive Date: 20140210
  Receipt Date: 20150506
  Transmission Date: 20150821
  Serious: Yes (Life-Threatening, Hospitalization, Other)
  Sender: FDA-Public Use
  Company Number: ADR-2014-00203

PATIENT
  Age: 27 Year
  Sex: Male

DRUGS (1)
  1. LIORESAL [Suspect]
     Active Substance: BACLOFEN
     Indication: MUSCLE SPASTICITY
     Dosage: UNK

REACTIONS (26)
  - Areflexia [None]
  - Idiosyncratic drug reaction [None]
  - Foreign body [None]
  - Toxicity to various agents [None]
  - Hyperhidrosis [None]
  - Mental status changes [None]
  - Pneumonia aspiration [None]
  - Condition aggravated [None]
  - Overdose [None]
  - Cerebrovascular accident [None]
  - Computerised tomogram abnormal [None]
  - Peripheral coldness [None]
  - General physical health deterioration [None]
  - Drug withdrawal syndrome [None]
  - Underdose [None]
  - Drug intolerance [None]
  - Cough [None]
  - Joint swelling [None]
  - Cold sweat [None]
  - Dysphagia [None]
  - Implant site infection [None]
  - Seizure [None]
  - Pyrexia [None]
  - Aphasia [None]
  - Functional gastrointestinal disorder [None]
  - Therapeutic response unexpected [None]

NARRATIVE: CASE EVENT DATE: 20140101
